FAERS Safety Report 11074242 (Version 1)
Quarter: 2015Q2

REPORT INFORMATION
  Report Type: Spontaneous
  Country: US (occurrence: None)
  Receive Date: 20150427
  Receipt Date: 20150427
  Transmission Date: 20150821
  Serious: Yes (Hospitalization, Other)
  Sender: FDA-Public Use
  Company Number: DEP_02697_2015

PATIENT
  Age: 61 Year
  Sex: Male
  Weight: 92.08 kg

DRUGS (27)
  1. PROVIGIL [Concomitant]
     Active Substance: MODAFINIL
  2. LIMBREL [Concomitant]
     Active Substance: FLAVOCOXID
  3. ZANTAC [Concomitant]
     Active Substance: RANITIDINE HYDROCHLORIDE
  4. DICYCLOMINE [Concomitant]
     Active Substance: DICYCLOMINE HYDROCHLORIDE
  5. ASCORBIC ACID (VITAMIN C) [Concomitant]
     Active Substance: ASCORBIC ACID
  6. CALCIUM VIT D [Concomitant]
  7. VITAMIN B12 [Concomitant]
     Active Substance: CYANOCOBALAMIN
  8. FISH OIL [Concomitant]
     Active Substance: FISH OIL
  9. BUSPAR [Concomitant]
     Active Substance: BUSPIRONE HYDROCHLORIDE
  10. KLONOPIN [Concomitant]
     Active Substance: CLONAZEPAM
  11. VICKS [Concomitant]
     Active Substance: MENTHOL\OXYMETAZOLINE HYDROCHLORIDE\PHENYLEPHRINE HYDROCHLORIDE
  12. LYRICA [Concomitant]
     Active Substance: PREGABALIN
  13. SYNTHROID [Concomitant]
     Active Substance: LEVOTHYROXINE SODIUM
  14. VITAMIN D2 [Concomitant]
     Active Substance: ERGOCALCIFEROL
  15. NUCYNTA ER [Suspect]
     Active Substance: TAPENTADOL HYDROCHLORIDE
     Indication: PAIN
     Dosage: 1X/12 HOURS
     Route: 048
     Dates: start: 20140604, end: 20150202
  16. RIBAXIN [Concomitant]
  17. KBCYL COMPOUNDING  CREAM [Concomitant]
  18. PRILOSEC [Concomitant]
     Active Substance: OMEPRAZOLE MAGNESIUM
  19. LINZESS [Concomitant]
     Active Substance: LINACLOTIDE
  20. UNSPECIFIED OTC ALLERGY MEDICINE [Concomitant]
  21. TYLENOL [Concomitant]
     Active Substance: ACETAMINOPHEN
  22. PRAVASTATIN [Concomitant]
     Active Substance: PRAVASTATIN\PRAVASTATIN SODIUM
  23. MULTIVITAMINS [Concomitant]
     Active Substance: VITAMINS
  24. THERMACARE WRAP [Concomitant]
  25. DULCOLAX STOOL SOFTENER [Concomitant]
     Active Substance: DOCUSATE SODIUM
  26. OSTEO BI-FLEX [Concomitant]
     Active Substance: CHONDROITIN SULFATE A\GLUCOSAMINE
  27. ENALAPRIL [Concomitant]
     Active Substance: ENALAPRIL

REACTIONS (11)
  - Gastrointestinal disorder [None]
  - Fall [None]
  - Drug screen positive [None]
  - Infection [None]
  - Intervertebral disc protrusion [None]
  - Acute kidney injury [None]
  - Somnolence [None]
  - Asthenia [None]
  - Rectal prolapse [None]
  - Blood gases abnormal [None]
  - White blood cell count increased [None]

NARRATIVE: CASE EVENT DATE: 20140604
